FAERS Safety Report 12237012 (Version 1)
Quarter: 2016Q2

REPORT INFORMATION
  Report Type: Report from Study
  Country: US (occurrence: US)
  Receive Date: 20160405
  Receipt Date: 20160405
  Transmission Date: 20160815
  Serious: No
  Sender: FDA-Public Use
  Company Number: US-AMGEN-USASL2016039187

PATIENT
  Age: 58 Year

DRUGS (4)
  1. VENLAFAXINE [Concomitant]
     Active Substance: VENLAFAXINE HYDROCHLORIDE
     Dosage: 37.5 MG, QD
  2. HYDROCODONE [Concomitant]
     Active Substance: HYDROCODONE
     Dosage: UNK
  3. ENBREL [Suspect]
     Active Substance: ETANERCEPT
     Indication: PRODUCT USED FOR UNKNOWN INDICATION
     Dosage: UNK
     Route: 065
  4. METHOTREXATE [Concomitant]
     Active Substance: METHOTREXATE
     Dosage: 6 DF, QWK

REACTIONS (10)
  - Feeling abnormal [Unknown]
  - Drug effect incomplete [Unknown]
  - Pain in extremity [Unknown]
  - Mobility decreased [Unknown]
  - Arthralgia [Unknown]
  - Apathy [Unknown]
  - Pain [Unknown]
  - Anger [Unknown]
  - Anxiety [Unknown]
  - Screaming [Unknown]
